FAERS Safety Report 5747016-0 (Version None)
Quarter: 2008Q2

REPORT INFORMATION
  Report Type: 
  Country: None (occurrence: None)
  Receive Date: 20080520
  Receipt Date: 20080517
  Transmission Date: 20081010
  Serious: Yes (Hospitalization)
  Sender: FDA-Public Use
  Company Number: 2008SP006288

PATIENT
  Age: 51 Year
  Sex: Male

DRUGS (2)
  1. PEGINTERFERON ALFA-2B (S-P) [Suspect]
     Indication: HEPATITIS C
     Dosage: SC
     Route: 058
  2. RIBAVIRIN [Suspect]
     Indication: HEPATITIS C
     Dosage: PO
     Route: 048

REACTIONS (6)
  - COLITIS ISCHAEMIC [None]
  - GASTRIC ULCER [None]
  - HEART RATE INCREASED [None]
  - PLATELET COUNT DECREASED [None]
  - RECTAL HAEMORRHAGE [None]
  - RESPIRATORY RATE INCREASED [None]
